FAERS Safety Report 21156630 (Version 1)
Quarter: 2022Q3

REPORT INFORMATION
  Report Type: Spontaneous
  Country: US (occurrence: None)
  Receive Date: 20220801
  Receipt Date: 20220801
  Transmission Date: 20221026
  Serious: No
  Sender: FDA-Public Use
  Company Number: None

PATIENT
  Age: 81 Year
  Sex: Male
  Weight: 165.4 kg

DRUGS (25)
  1. LENALIDOMIDE [Suspect]
     Active Substance: LENALIDOMIDE
     Indication: Plasma cell myeloma
     Dosage: OTHER FREQUENCY : 3W, 1W OFF ;?
     Dates: start: 20220519
  2. ACYCLOVIR [Concomitant]
  3. ALLOPURINOL [Concomitant]
  4. ASPIRIN [Concomitant]
     Active Substance: ASPIRIN
  5. COLESTIPOL HCI [Concomitant]
  6. EZETIMIBE [Concomitant]
  7. FREESTYLE FREEDOM [Concomitant]
  8. GLUCOSAMINE [Concomitant]
  9. HYZAAR [Concomitant]
  10. LATANOPROST [Concomitant]
  11. LOSARTAN POTASSIUM [Concomitant]
  12. MULTIPLE VIT/MINERALS/NO NORCO [Concomitant]
  13. IRON [Concomitant]
     Active Substance: IRON
  14. NORVASC NYSTATIN [Concomitant]
  15. NYSTATIN-TRIAMCINOLONE [Concomitant]
  16. PANTOPRAZOLE SODIUM [Concomitant]
  17. PRAVASTATIN SODIUM [Concomitant]
  18. PREGABALIN [Concomitant]
  19. PROCHLORPERAZINE MALEATE [Concomitant]
  20. TIMOLOL MALEATE [Concomitant]
  21. TRUE METRIX BLOOD GLUCOSE TEST [Concomitant]
  22. TRUEPLUS LANCETS [Concomitant]
  23. TYLENOL 8 HOUR ARTHRITIS PAIN [Concomitant]
  24. VITAMIN D VOLTAREN [Concomitant]
  25. ZETIA [Concomitant]

REACTIONS (1)
  - Full blood count abnormal [None]
